FAERS Safety Report 12904294 (Version 1)
Quarter: 2016Q4

REPORT INFORMATION
  Report Type: Spontaneous
  Country: US (occurrence: US)
  Receive Date: 20161101
  Receipt Date: 20161101
  Transmission Date: 20170207
  Serious: Yes (Other)
  Sender: FDA-Public Use
  Company Number: None

PATIENT
  Sex: Female
  Weight: 80.81 kg

DRUGS (1)
  1. H.P. ACTHAR [Suspect]
     Active Substance: CORTICOTROPIN
     Indication: RHEUMATOID ARTHRITIS
     Dosage: 80 UNITS 2 X WEEKLY
     Route: 058
     Dates: start: 201610

REACTIONS (4)
  - Blood glucose increased [None]
  - Nervousness [None]
  - Blood glucose abnormal [None]
  - Sleep disorder [None]
